FAERS Safety Report 16813658 (Version 1)
Quarter: 2020Q3

REPORT INFORMATION
  Report Type: Spontaneous
  Country: US (occurrence: US)
  Receive Date: 20190917
  Receipt Date: 20190917
  Transmission Date: 20201104
  Serious: Yes (Other)
  Sender: FDA-Public Use
  Company Number: US-JIANGSU HENGRUI MEDICINE CO., LTD.-2074512

PATIENT

DRUGS (7)
  1. RDHAP (DEXAMETHASONE) [Suspect]
     Active Substance: DEXAMETHASONE
  2. POLATUZUMAB VEDOTIN. [Suspect]
     Active Substance: POLATUZUMAB VEDOTIN
  3. RDHAP (CYTARABINE) [Suspect]
     Active Substance: CYTARABINE
  4. RDHAP (RITUXIMAB) [Suspect]
     Active Substance: RITUXIMAB
  5. R CHOP?CYCLOPHOSPHAMIDE, DOXORUBICIN HYDROCHLORIDE, PREDNISONE, RITUXI [Suspect]
     Active Substance: CYCLOPHOSPHAMIDE\DOXORUBICIN\PREDNISONE\RITUXIMAB\VINCRISTINE
  6. CYCLOPHOSPHAMIDE FOR INJECTION USP, 500 MG, 1 G AND 2 G PER SINGLE?DOS [Suspect]
     Active Substance: CYCLOPHOSPHAMIDE
     Indication: DIFFUSE LARGE B-CELL LYMPHOMA
  7. RDHAP (CISPLATIN) [Suspect]
     Active Substance: CISPLATIN

REACTIONS (2)
  - Diffuse large B-cell lymphoma refractory [Unknown]
  - Diffuse large B-cell lymphoma recurrent [Unknown]
